FAERS Safety Report 7995974-6 (Version None)
Quarter: 2011Q4

REPORT INFORMATION
  Report Type: 
  Country: None (occurrence: None)
  Receive Date: 20111220
  Receipt Date: 20111214
  Transmission Date: 20120403
  Serious: Yes (Hospitalization)
  Sender: FDA-Public Use
  Company Number: US-TEVA-312504USA

PATIENT
  Sex: Female

DRUGS (1)
  1. DIAMOX SRC [Suspect]

REACTIONS (4)
  - NERVOUS SYSTEM DISORDER [None]
  - INFECTION [None]
  - DRUG INEFFECTIVE [None]
  - CRYING [None]
